FAERS Safety Report 6362505-6 (Version None)
Quarter: 2009Q3

REPORT INFORMATION
  Report Type: 
  Country: None (occurrence: None)
  Receive Date: 20090918
  Receipt Date: 20090709
  Transmission Date: 20100115
  Serious: No
  Sender: FDA-Public Use
  Company Number: US-ABBOTT-09P-163-0577049-00

PATIENT
  Sex: Female

DRUGS (1)
  1. HUMIRA [Suspect]
     Indication: DRUG USE FOR UNKNOWN INDICATION
     Dosage: DAY 1
     Route: 058
     Dates: start: 20090518

REACTIONS (3)
  - ANXIETY [None]
  - INJECTION SITE HAEMATOMA [None]
  - INJECTION SITE PAIN [None]
